FAERS Safety Report 8172170-3 (Version None)
Quarter: 2012Q1

REPORT INFORMATION
  Report Type: 
  Country: None (occurrence: None)
  Receive Date: 20120228
  Receipt Date: 20120221
  Transmission Date: 20120608
  Serious: Yes (Hospitalization)
  Sender: FDA-Public Use
  Company Number: US-ABBOTT-12P-163-0907125-00

PATIENT
  Age: 50 Year
  Sex: Female

DRUGS (2)
  1. IMURAN [Concomitant]
     Indication: CROHN'S DISEASE
     Dosage: DAILY
  2. HUMIRA [Suspect]
     Indication: CROHN'S DISEASE
     Dates: start: 20120105

REACTIONS (2)
  - PYREXIA [None]
  - DEHYDRATION [None]
